FAERS Safety Report 25682081 (Version 1)
Quarter: 2025Q3

REPORT INFORMATION
  Report Type: Spontaneous
  Country: EU (occurrence: EU)
  Receive Date: 20250814
  Receipt Date: 20250814
  Transmission Date: 20251020
  Serious: Yes (Other)
  Sender: CHEPLAPHARM
  Company Number: None

PATIENT
  Age: 7 Month
  Sex: Male
  Weight: 8 kg

DRUGS (2)
  1. CLONAZEPAM [Suspect]
     Active Substance: CLONAZEPAM
     Dosage: 0.8 ML OF 2.5 MG/ML/8 HOURS
     Route: 042
     Dates: start: 20250609, end: 20250610
  2. CLONAZEPAM [Suspect]
     Active Substance: CLONAZEPAM
     Dosage: 0.8 ML OF THE 0.1 MG/ML SOLUTION, EQUIVALENT TO 0.01 MG/KG/8 HOURS.
     Route: 042

REACTIONS (3)
  - Somnolence [Recovered/Resolved]
  - Unresponsive to stimuli [Recovered/Resolved]
  - Incorrect dose administered [Recovered/Resolved]

NARRATIVE: CASE EVENT DATE: 20250609
